FAERS Safety Report 4645209-7 (Version None)
Quarter: 2005Q2

REPORT INFORMATION
  Report Type: 
  Country: None (occurrence: None)
  Receive Date: 20050426
  Receipt Date: 20040929
  Transmission Date: 20051028
  Serious: Yes (Hospitalization)
  Sender: FDA-Public Use
  Company Number: AU-GLAXOSMITHKLINE-B0347258A

PATIENT
  Age: 47 Year
  Sex: Female

DRUGS (2)
  1. VALTREX [Suspect]
     Indication: HERPES SIMPLEX
     Route: 048
     Dates: start: 20040421, end: 20040424
  2. NO CONCURRENT MEDICATION [Concomitant]

REACTIONS (6)
  - ANXIETY [None]
  - HEADACHE [None]
  - MIGRAINE [None]
  - NEURALGIA [None]
  - PAIN [None]
  - PAIN IN EXTREMITY [None]
